FAERS Safety Report 18771302 (Version 1)
Quarter: 2021Q1

REPORT INFORMATION
  Report Type: Spontaneous
  Country: US (occurrence: US)
  Receive Date: 20210121
  Receipt Date: 20210121
  Transmission Date: 20210419
  Serious: Yes (Other)
  Sender: FDA-Public Use
  Company Number: US-TEVA-2021-US-1870016

PATIENT
  Age: 31 Year
  Sex: Female

DRUGS (3)
  1. BLEOMYCIN [Suspect]
     Active Substance: BLEOMYCIN SULFATE
     Indication: OVARIAN CANCER
     Dosage: THREE CYCLES EVERY 3 WEEKS
     Route: 065
     Dates: end: 201811
  2. ETOPOSIDE. [Suspect]
     Active Substance: ETOPOSIDE
     Indication: OVARIAN CANCER
     Dosage: THREE CYCLES EVERY 3 WEEKS
     Route: 065
     Dates: end: 201811
  3. CISPLATIN. [Suspect]
     Active Substance: CISPLATIN
     Indication: OVARIAN CANCER
     Dosage: THREE CYCLES EVERY 3 WEEKS
     Route: 065
     Dates: end: 201811

REACTIONS (1)
  - Acute kidney injury [Unknown]
